FAERS Safety Report 24324039 (Version 1)
Quarter: 2024Q3

REPORT INFORMATION
  Report Type: Spontaneous
  Country: FR (occurrence: FR)
  Receive Date: 20240916
  Receipt Date: 20240916
  Transmission Date: 20241017
  Serious: Yes (Other)
  Sender: SANDOZ
  Company Number: FR-PFIZER INC-2018529401

PATIENT
  Age: 41 Year
  Sex: Female

DRUGS (37)
  1. CYCLOPHOSPHAMIDE [Suspect]
     Active Substance: CYCLOPHOSPHAMIDE
     Dosage: 8 MG, SINGLE
     Route: 042
     Dates: start: 20120215, end: 20120215
  2. CYCLOPHOSPHAMIDE [Suspect]
     Active Substance: CYCLOPHOSPHAMIDE
     Dosage: 900 MG, ONCE/SINGLE (TOTAL)
     Route: 042
     Dates: start: 20111026, end: 20111026
  3. CYCLOPHOSPHAMIDE [Suspect]
     Active Substance: CYCLOPHOSPHAMIDE
     Dosage: 900 MG, SINGLE
     Route: 042
     Dates: start: 20111116, end: 20111116
  4. CYCLOPHOSPHAMIDE [Suspect]
     Active Substance: CYCLOPHOSPHAMIDE
     Dosage: 900 MG, SINGLE
     Route: 042
     Dates: start: 20111207, end: 20111207
  5. CYCLOPHOSPHAMIDE [Suspect]
     Active Substance: CYCLOPHOSPHAMIDE
     Dosage: 3 COURSES
     Route: 065
  6. CYCLOPHOSPHAMIDE [Suspect]
     Active Substance: CYCLOPHOSPHAMIDE
     Indication: Product used for unknown indication
     Dosage: UNK
     Route: 065
  7. DOCETAXEL [Suspect]
     Active Substance: DOCETAXEL\DOCETAXEL ANHYDROUS
     Dosage: 180 MG, ONCE/SINGLE (TOTAL)
     Route: 042
     Dates: start: 20120104, end: 20120104
  8. DOCETAXEL [Suspect]
     Active Substance: DOCETAXEL\DOCETAXEL ANHYDROUS
     Dosage: 180 MG, ONCE/SINGLE (TOTAL)
     Route: 042
     Dates: start: 20120125, end: 20120125
  9. DOCETAXEL [Suspect]
     Active Substance: DOCETAXEL\DOCETAXEL ANHYDROUS
     Dosage: 180 MG, ONCE/SINGLE (TOTAL)
     Route: 042
     Dates: start: 20120215, end: 20120215
  10. DOCETAXEL [Suspect]
     Active Substance: DOCETAXEL\DOCETAXEL ANHYDROUS
     Dosage: 8 MG, DAILY
     Route: 048
     Dates: start: 20120125, end: 20120126
  11. DOCETAXEL [Suspect]
     Active Substance: DOCETAXEL\DOCETAXEL ANHYDROUS
     Dosage: 8 MG, DAILY
     Route: 048
     Dates: start: 20120215, end: 20120216
  12. DOCETAXEL [Suspect]
     Active Substance: DOCETAXEL\DOCETAXEL ANHYDROUS
     Dosage: 8 MG, SINGLE
     Route: 042
     Dates: start: 20120125, end: 20120125
  13. DOCETAXEL [Suspect]
     Active Substance: DOCETAXEL\DOCETAXEL ANHYDROUS
     Dosage: 8 MG, SINGLE
     Route: 042
     Dates: start: 20111026, end: 20111026
  14. DOCETAXEL [Suspect]
     Active Substance: DOCETAXEL\DOCETAXEL ANHYDROUS
     Indication: Breast cancer female
     Dosage: UNK
     Route: 065
     Dates: start: 20111026, end: 20120215
  15. DOCETAXEL [Suspect]
     Active Substance: DOCETAXEL\DOCETAXEL ANHYDROUS
     Indication: Product used for unknown indication
     Dosage: UNK (3 COURSES)
     Route: 065
  16. EPIRUBICIN HYDROCHLORIDE [Suspect]
     Active Substance: EPIRUBICIN HYDROCHLORIDE
     Dosage: 180 MG, ONCE/SINGLE (TOTAL)
     Route: 042
     Dates: start: 20111026, end: 20111026
  17. EPIRUBICIN HYDROCHLORIDE [Suspect]
     Active Substance: EPIRUBICIN HYDROCHLORIDE
     Dosage: 180 MG, ONCE/SINGLE (TOTAL)
     Route: 042
     Dates: start: 20111116, end: 20111116
  18. EPIRUBICIN HYDROCHLORIDE [Suspect]
     Active Substance: EPIRUBICIN HYDROCHLORIDE
     Dosage: 180 MG, ONCE/SINGLE (TOTAL)
     Route: 042
     Dates: start: 20111207, end: 20111207
  19. EPIRUBICIN HYDROCHLORIDE [Suspect]
     Active Substance: EPIRUBICIN HYDROCHLORIDE
     Dosage: 8 MG, SINGLE
     Route: 042
     Dates: start: 20111207, end: 20111207
  20. EPIRUBICIN HYDROCHLORIDE [Suspect]
     Active Substance: EPIRUBICIN HYDROCHLORIDE
     Dosage: 8 MG, SINGLE
     Route: 042
     Dates: start: 20120104, end: 20120104
  21. EPIRUBICIN HYDROCHLORIDE [Suspect]
     Active Substance: EPIRUBICIN HYDROCHLORIDE
     Indication: Product used for unknown indication
     Dosage: UNK (3 COURSES)
     Route: 065
  22. FLUOROURACIL [Suspect]
     Active Substance: FLUOROURACIL
     Dosage: 900 MG, ONCE/SINGLE (TOTAL)
     Route: 042
     Dates: start: 20111026, end: 20111026
  23. FLUOROURACIL [Suspect]
     Active Substance: FLUOROURACIL
     Dosage: 900 MG, ONCE/SINGLE (TOTAL)
     Route: 042
     Dates: start: 20111116, end: 20111116
  24. FLUOROURACIL [Suspect]
     Active Substance: FLUOROURACIL
     Dosage: 900 MG, ONCE/SINGLE (TOTAL)
     Route: 042
     Dates: start: 20111207, end: 20111207
  25. FLUOROURACIL [Suspect]
     Active Substance: FLUOROURACIL
     Indication: Product used for unknown indication
     Dosage: UNK (3 COURSES)
     Route: 065
  26. TAMOXIFEN CITRATE [Suspect]
     Active Substance: TAMOXIFEN CITRATE
     Indication: Breast cancer female
     Dosage: UNK
     Route: 065
     Dates: start: 20120501
  27. TAMOXIFEN CITRATE [Suspect]
     Active Substance: TAMOXIFEN CITRATE
     Indication: Product used for unknown indication
     Dosage: UNK
     Route: 065
  28. TAMOXIFEN CITRATE [Suspect]
     Active Substance: TAMOXIFEN CITRATE
     Dosage: UNK
     Route: 065
     Dates: start: 2011
  29. DEXAMETHASONE [Concomitant]
     Active Substance: DEXAMETHASONE
     Indication: Product used for unknown indication
     Dosage: 8 MG, QD
     Route: 048
     Dates: start: 20120104, end: 20120105
  30. DEXAMETHASONE [Concomitant]
     Active Substance: DEXAMETHASONE
     Dosage: 8 MG, QD
     Route: 048
     Dates: start: 20120125, end: 20120126
  31. DEXAMETHASONE [Concomitant]
     Active Substance: DEXAMETHASONE
     Dosage: 8 MG, QD
     Route: 048
     Dates: start: 20120215, end: 20120216
  32. ONDANSETRON [Concomitant]
     Active Substance: ONDANSETRON
     Indication: Product used for unknown indication
     Dosage: 8 MG, ONCE/SINGLE (TOTAL)
     Route: 042
     Dates: start: 20111026, end: 20111026
  33. ONDANSETRON [Concomitant]
     Active Substance: ONDANSETRON
     Dosage: 8 MG, ONCE/SINGLE (TOTAL)
     Route: 042
     Dates: start: 20111116, end: 20111116
  34. ONDANSETRON [Concomitant]
     Active Substance: ONDANSETRON
     Dosage: 8 MG, ONCE/SINGLE (TOTAL)
     Route: 042
     Dates: start: 20111207, end: 20111207
  35. ONDANSETRON [Concomitant]
     Active Substance: ONDANSETRON
     Dosage: 8 MG, ONCE/SINGLE (TOTAL)
     Route: 042
     Dates: start: 20120104, end: 20120104
  36. ONDANSETRON [Concomitant]
     Active Substance: ONDANSETRON
     Dosage: 8 MG, ONCE/SINGLE (TOTAL)
     Route: 042
     Dates: start: 20120125, end: 20120125
  37. ONDANSETRON [Concomitant]
     Active Substance: ONDANSETRON
     Dosage: 8 MG, ONCE/SINGLE (TOTAL)
     Route: 042
     Dates: start: 20120215, end: 20120215

REACTIONS (44)
  - Insomnia [Unknown]
  - Skin sensitisation [Unknown]
  - Neuropathy peripheral [Unknown]
  - Facial pain [Unknown]
  - Emotional disorder [Unknown]
  - Arthralgia [Unknown]
  - Neuralgia [Unknown]
  - Fatigue [Unknown]
  - Cognitive disorder [Unknown]
  - Hot flush [Unknown]
  - Paraesthesia [Unknown]
  - Muscle contracture [Unknown]
  - Muscle spasms [Unknown]
  - Pain [Unknown]
  - Chills [Unknown]
  - Gingival pain [Unknown]
  - Dizziness [Unknown]
  - Pathological fracture [Unknown]
  - Dysstasia [Unknown]
  - Loss of libido [Unknown]
  - Visual impairment [Unknown]
  - Depressive symptom [Unknown]
  - Tooth disorder [Unknown]
  - Gait disturbance [Unknown]
  - Disturbance in attention [Unknown]
  - Mucosal toxicity [Unknown]
  - Ageusia [Unknown]
  - Periostitis [Unknown]
  - Hallucination [Unknown]
  - Disturbance in attention [Unknown]
  - Heavy menstrual bleeding [Unknown]
  - Tetany [Unknown]
  - Skin toxicity [Unknown]
  - Tinnitus [Unknown]
  - Vulvovaginal dryness [Unknown]
  - Sensory loss [Unknown]
  - Pain in extremity [Unknown]
  - Weight increased [Recovering/Resolving]
  - Visual acuity reduced [Unknown]
  - Hepatic cytolysis [Recovering/Resolving]
  - Vomiting [Unknown]
  - Nausea [Unknown]
  - Platelet count decreased [Unknown]
  - Herpes zoster [Unknown]

NARRATIVE: CASE EVENT DATE: 20111017
